FAERS Safety Report 6783545-9 (Version None)
Quarter: 2010Q2

REPORT INFORMATION
  Report Type: 
  Country: None (occurrence: None)
  Receive Date: 20100618
  Receipt Date: 20100603
  Transmission Date: 20101027
  Serious: Yes (Hospitalization)
  Sender: FDA-Public Use
  Company Number: ACO_01050_2010

PATIENT
  Sex: Female

DRUGS (2)
  1. AMPYRA [Suspect]
     Indication: DRUG USE FOR UNKNOWN INDICATION
     Dosage: DF
     Dates: end: 20100101
  2. TYSABRI [Suspect]
     Indication: MULTIPLE SCLEROSIS
     Dosage: 300 MG 1X/MONTH INTRAVENOUS (NOT OTHERWISE SPECIFIED)
     Dates: start: 20080923

REACTIONS (4)
  - DRUG HYPERSENSITIVITY [None]
  - HEADACHE [None]
  - NAUSEA [None]
  - PYREXIA [None]
